FAERS Safety Report 8257109-4 (Version None)
Quarter: 2012Q2

REPORT INFORMATION
  Report Type: 
  Country: None (occurrence: None)
  Receive Date: 20120403
  Receipt Date: 20120329
  Transmission Date: 20120825
  Serious: No
  Sender: FDA-Public Use
  Company Number: US-PFIZER INC-2012080997

PATIENT
  Sex: Male

DRUGS (1)
  1. CHILDREN'S ADVIL [Suspect]
     Indication: PAIN IN EXTREMITY
     Dosage: UNK, 1X/DAY
     Route: 048
     Dates: start: 20120329

REACTIONS (2)
  - NASAL CONGESTION [None]
  - NAUSEA [None]
